FAERS Safety Report 8373802-7 (Version None)
Quarter: 2012Q2

REPORT INFORMATION
  Report Type: 
  Country: None (occurrence: None)
  Receive Date: 20120521
  Receipt Date: 20120515
  Transmission Date: 20120825
  Serious: Yes (Death, Hospitalization)
  Sender: FDA-Public Use
  Company Number: CA-ROCHE-1064654

PATIENT
  Sex: Female
  Weight: 63.56 kg

DRUGS (4)
  1. AVASTIN [Suspect]
     Route: 042
     Dates: start: 20120229, end: 20120412
  2. AVASTIN [Suspect]
     Route: 042
     Dates: start: 20120221
  3. AVASTIN [Suspect]
     Indication: GLIOBLASTOMA
     Route: 042
     Dates: start: 20120215
  4. SYNTHROID [Concomitant]

REACTIONS (2)
  - PNEUMONIA [None]
  - DEATH [None]
